FAERS Safety Report 8593563 (Version 3)
Quarter: 2012Q4

REPORT INFORMATION
  Report Type: 
  Country: US (occurrence: US)
  Receive Date: 20120604
  Receipt Date: 20120918
  Transmission Date: 20130627
  Serious: Yes (Hospitalization)
  Sender: FDA-Public Use
  Company Number: US-BAYER-2012-053245

PATIENT
  Age: 29 Year
  Sex: Female
  Weight: 72 kg

DRUGS (6)
  1. YAZ [Suspect]
     Indication: ACNE
     Dosage: UNK
     Dates: start: 20090616, end: 20100114
  2. YAZ [Suspect]
     Indication: DYSMENORRHOEA
  3. DOXYCYCLINE [Concomitant]
     Indication: ACNE
     Dosage: 100 mg, BID
     Dates: start: 20100114
  4. TRETINOIN [Concomitant]
     Indication: ACNE
     Dosage: UNK
     Route: 061
     Dates: start: 20100114
  5. BENZOYL PEROXIDE [Concomitant]
     Indication: ACNE
     Dosage: UNK
     Dates: start: 20100114
  6. TYLENOL [Concomitant]
     Indication: PAIN
     Dosage: 650 mg, PRN

REACTIONS (5)
  - Deep vein thrombosis [Recovered/Resolved]
  - Injury [Recovered/Resolved]
  - Oedema peripheral [Recovered/Resolved]
  - Pain in extremity [Recovered/Resolved]
  - Pain [None]
